FAERS Safety Report 6195370-0 (Version None)
Quarter: 2009Q2

REPORT INFORMATION
  Report Type: 
  Country: None (occurrence: None)
  Receive Date: 20090515
  Receipt Date: 20090508
  Transmission Date: 20091009
  Serious: Yes (Death)
  Sender: FDA-Public Use
  Company Number: TPA2009A00807

PATIENT
  Age: 48 Year
  Sex: Male
  Weight: 116.1 kg

DRUGS (11)
  1. ULORIC [Suspect]
     Indication: GOUT
     Dosage: 80 MG, 1 IN 1 D, PER ORAL
     Route: 048
     Dates: start: 20090320
  2. METHADONE HCL [Concomitant]
  3. VICODIN [Concomitant]
  4. LEVOTHYROXINE SODIUM [Concomitant]
  5. PIROXICAM [Concomitant]
  6. TRAMADOL HCL [Concomitant]
  7. JANUMET [Concomitant]
  8. SYMBICORT [Concomitant]
  9. TOPROL-XL [Concomitant]
  10. CADUET [Concomitant]
  11. LISINOPRIL/HYDROCHLORITHIAZIDE [Concomitant]

REACTIONS (2)
  - OVERDOSE [None]
  - UNRESPONSIVE TO STIMULI [None]
